FAERS Safety Report 8780443 (Version 1)
Quarter: 2012Q4

REPORT INFORMATION
  Report Type: Spontaneous
  Country: US (occurrence: None)
  Receive Date: 20120905
  Receipt Date: 20120905
  Transmission Date: 20130627
  Serious: No
  Sender: FDA-Public Use
  Company Number: None

PATIENT
  Age: 86 Year
  Sex: Male

DRUGS (1)
  1. CETIRIZINE [Suspect]
     Indication: NASAL CONGESTION
     Dosage: qd to bid
     Route: 048
     Dates: start: 20120823, end: 20120824

REACTIONS (3)
  - Gastrointestinal disorder [None]
  - Diarrhoea [None]
  - Constipation [None]
